FAERS Safety Report 25710304 (Version 1)
Quarter: 2025Q3

REPORT INFORMATION
  Report Type: Spontaneous
  Country: GB (occurrence: GB)
  Receive Date: 20250821
  Receipt Date: 20250821
  Transmission Date: 20251020
  Serious: Yes (Other)
  Sender: BAYER HEALTHCARE PHARMACEUTICALS INC.
  Company Number: None

PATIENT
  Age: 59 Year
  Sex: Female

DRUGS (2)
  1. CIPROFLOXACIN [Suspect]
     Active Substance: CIPROFLOXACIN
     Indication: Urinary tract infection
     Dosage: 750 MG, BID
     Route: 048
     Dates: start: 20250623
  2. CIPROFLOXACIN [Suspect]
     Active Substance: CIPROFLOXACIN
     Indication: Urinary tract infection
     Dosage: 750 MG, BID
     Route: 048
     Dates: start: 20250623, end: 20250627

REACTIONS (2)
  - Blindness [Recovered/Resolved]
  - Visual brightness [Recovered/Resolved]

NARRATIVE: CASE EVENT DATE: 20250625
